FAERS Safety Report 9347289 (Version 2)
Quarter: 2013Q3

REPORT INFORMATION
  Report Type: Report from Study
  Country: US (occurrence: US)
  Receive Date: 20130613
  Receipt Date: 20130715
  Transmission Date: 20140515
  Serious: Yes (Other)
  Sender: FDA-Public Use
  Company Number: US-ELI_LILLY_AND_COMPANY-US201209005386

PATIENT
  Age: 82 Year
  Sex: Female
  Weight: 47.62 kg

DRUGS (2)
  1. TERIPARATIDE [Suspect]
     Indication: OSTEOPOROSIS
     Dosage: 20 UG, QD
     Route: 058
     Dates: start: 20120827
  2. CALCIUM VITAMIN D [Concomitant]

REACTIONS (4)
  - Pancreatitis [Recovered/Resolved]
  - Injection site haemorrhage [Recovered/Resolved]
  - Abdominal discomfort [Recovered/Resolved]
  - Mood altered [Not Recovered/Not Resolved]
